FAERS Safety Report 8520746 (Version 7)
Quarter: 2015Q1

REPORT INFORMATION
  Report Type: Spontaneous
  Country: US (occurrence: US)
  Receive Date: 20120418
  Receipt Date: 20150212
  Transmission Date: 20150721
  Serious: Yes (Other)
  Sender: FDA-Public Use
  Company Number: US-ASTRAZENECA-2011SE70470

PATIENT
  Age: 77 Year
  Sex: Female
  Weight: 74.8 kg

DRUGS (19)
  1. NEXIUM [Suspect]
     Active Substance: ESOMEPRAZOLE MAGNESIUM
     Indication: GASTROOESOPHAGEAL REFLUX DISEASE
     Route: 048
  2. NEXIUM [Suspect]
     Active Substance: ESOMEPRAZOLE MAGNESIUM
     Indication: OESOPHAGEAL CARCINOMA
     Route: 048
  3. NEXIUM [Suspect]
     Active Substance: ESOMEPRAZOLE MAGNESIUM
     Indication: GASTROOESOPHAGEAL REFLUX DISEASE
     Route: 048
     Dates: start: 2011
  4. OMEPRAZOLE OTC [Suspect]
     Active Substance: OMEPRAZOLE
     Route: 048
  5. CALCIUM [Concomitant]
     Active Substance: CALCIUM
     Dosage: IN THE MORNING
     Route: 048
  6. FISH OIL [Concomitant]
     Active Substance: FISH OIL
     Dosage: IN THE MORNING
     Route: 048
  7. METHOCARBAM [Concomitant]
  8. NEXIUM [Suspect]
     Active Substance: ESOMEPRAZOLE MAGNESIUM
     Indication: OESOPHAGEAL CARCINOMA
     Route: 048
     Dates: start: 2011
  9. VITAMIN D3 [Concomitant]
     Active Substance: CHOLECALCIFEROL
  10. OMEGA FISH OIL [Concomitant]
     Active Substance: FISH OIL\OMEGA-3 FATTY ACIDS
  11. LIPITOR [Concomitant]
     Active Substance: ATORVASTATIN CALCIUM
     Indication: BLOOD CHOLESTEROL INCREASED
     Route: 048
  12. LISINOPRIL. [Suspect]
     Active Substance: LISINOPRIL
     Indication: HYPERTENSION
     Route: 048
  13. AMLODIPINE [Concomitant]
     Active Substance: AMLODIPINE BESYLATE
     Indication: BLOOD PRESSURE ABNORMAL
     Route: 048
  14. BABY ASPIRIN [Concomitant]
     Active Substance: ASPIRIN
     Indication: CARDIOVASCULAR DISORDER
     Route: 048
  15. PRILOSEC OTC [Suspect]
     Active Substance: OMEPRAZOLE MAGNESIUM
     Route: 048
  16. TRIAM/HCTZ [Concomitant]
     Dosage: 37.5-5
  17. LOW DOSE ASPIRIN [Concomitant]
     Active Substance: ASPIRIN
  18. NABUMETONE. [Concomitant]
     Active Substance: NABUMETONE
  19. GABAPENTIN. [Concomitant]
     Active Substance: GABAPENTIN
     Route: 048

REACTIONS (18)
  - Oesophageal disorder [Unknown]
  - Barrett^s oesophagus [Unknown]
  - Gastrooesophageal reflux disease [Unknown]
  - Body height decreased [Not Recovered/Not Resolved]
  - Oropharyngeal pain [Unknown]
  - Saliva altered [Unknown]
  - Sleep disorder due to a general medical condition [Unknown]
  - Haemoptysis [Unknown]
  - Choking [Unknown]
  - Drug dose omission [Unknown]
  - Productive cough [Unknown]
  - Drug ineffective [Unknown]
  - Hiatus hernia [Unknown]
  - Intentional product misuse [Unknown]
  - Product use issue [Unknown]
  - Back disorder [Unknown]
  - Cough [Unknown]
  - Medication error [Unknown]

NARRATIVE: CASE EVENT DATE: 2011
